FAERS Safety Report 11774166 (Version 1)
Quarter: 2015Q4

REPORT INFORMATION
  Report Type: Spontaneous
  Country: GB (occurrence: GB)
  Receive Date: 20151124
  Receipt Date: 20151124
  Transmission Date: 20160304
  Serious: Yes (Death, Other)
  Sender: FDA-Public Use
  Company Number: GB-PFIZER INC-2015389770

PATIENT
  Age: 83 Year
  Sex: Female

DRUGS (1)
  1. PHENYTOIN SODIUM. [Suspect]
     Active Substance: PHENYTOIN SODIUM
     Indication: STATUS EPILEPTICUS
     Dosage: 750 MG PHENYTOIN IN 50 ML OF SOLUTION
     Route: 013

REACTIONS (5)
  - Venous thrombosis [Unknown]
  - Incorrect route of drug administration [Fatal]
  - Ischaemia [Fatal]
  - Peripheral ischaemia [Fatal]
  - Extravasation [Unknown]
